FAERS Safety Report 11342254 (Version 3)
Quarter: 2015Q3

REPORT INFORMATION
  Report Type: Spontaneous
  Country: JP (occurrence: JP)
  Receive Date: 20150805
  Receipt Date: 20150908
  Transmission Date: 20151125
  Serious: Yes (Hospitalization)
  Sender: FDA-Public Use
  Company Number: JP-PFIZER INC-2015257572

PATIENT
  Age: 88 Year
  Sex: Female
  Weight: 50 kg

DRUGS (19)
  1. PARUTOX [Concomitant]
     Dosage: UNK UNK, 3X/DAY
     Route: 048
     Dates: start: 20150611, end: 20150611
  2. LANSOPRAZOLE. [Concomitant]
     Active Substance: LANSOPRAZOLE
     Dosage: 15 MG, 1X/DAY
     Route: 048
     Dates: start: 20150613, end: 20150711
  3. DIART [Concomitant]
     Active Substance: AZOSEMIDE
     Dosage: 60 MG, 1X/DAY
     Route: 048
     Dates: start: 20150615, end: 20150711
  4. CILNIDIPINE [Concomitant]
     Active Substance: CILNIDIPINE
     Dosage: 1 DF, 1X/DAY
     Route: 048
     Dates: start: 20150615, end: 20150711
  5. SELARA [Suspect]
     Active Substance: EPLERENONE
     Indication: HYPERTENSION
     Dosage: 50 MG, 1X/DAY
     Route: 048
     Dates: start: 20150617
  6. MOSAPRIDE CITRATE [Concomitant]
     Active Substance: MOSAPRIDE CITRATE
     Dosage: 5 MG, 3X/DAY
     Route: 048
     Dates: start: 20150611, end: 20150611
  7. BIO-THREE [Concomitant]
     Active Substance: HERBALS
     Dosage: UNK UNK, 3X/DAY
     Route: 048
     Dates: start: 20150611, end: 20150611
  8. ASPARA K [Concomitant]
     Active Substance: POTASSIUM ASPARTATE
     Dosage: UNK
     Dates: start: 20150619, end: 20150624
  9. BISONO [Concomitant]
     Dosage: UNK UNK, 1X/DAY
     Route: 062
     Dates: start: 20150607
  10. VALSARTAN. [Concomitant]
     Active Substance: VALSARTAN
     Dosage: 80 MG, 1X/DAY
     Route: 048
     Dates: start: 20150615, end: 20150711
  11. DAI-KENCHU-TO [Concomitant]
     Active Substance: MALTOSE
     Dosage: UNK UNK, 3X/DAY
     Route: 048
     Dates: start: 20150611, end: 20150718
  12. DIART [Concomitant]
     Active Substance: AZOSEMIDE
     Dosage: 60 UNK, UNK
     Route: 048
     Dates: start: 20150713
  13. CILNIDIPINE [Concomitant]
     Active Substance: CILNIDIPINE
     Dosage: UNK
     Route: 048
     Dates: start: 20150713
  14. SAMSCA [Concomitant]
     Active Substance: TOLVAPTAN
     Dosage: 15 MG, 1X/DAY
     Route: 048
     Dates: start: 20150612, end: 20150622
  15. SELARA [Suspect]
     Active Substance: EPLERENONE
     Indication: HYPOKALAEMIA
  16. MAGMITT [Concomitant]
     Active Substance: MAGNESIUM OXIDE
     Dosage: 330 MG, 3X/DAY
     Route: 048
     Dates: start: 20150614, end: 20150711
  17. VALSARTAN. [Concomitant]
     Active Substance: VALSARTAN
     Dosage: 80 UNK, UNK
     Route: 048
     Dates: start: 20150713
  18. EBRANTIL [Concomitant]
     Active Substance: URAPIDIL
     Dosage: 1 DF, 2X/DAY
     Route: 048
     Dates: start: 20150722
  19. URSODEOXYCHOLIC ACID [Concomitant]
     Active Substance: URSODIOL
     Dosage: 2 DF, 3X/DAY
     Route: 048
     Dates: start: 20150717

REACTIONS (1)
  - Hepatic function abnormal [Recovered/Resolved]

NARRATIVE: CASE EVENT DATE: 20150709
